FAERS Safety Report 6792226-7 (Version None)
Quarter: 2010Q2

REPORT INFORMATION
  Report Type: 
  Country: None (occurrence: None)
  Receive Date: 20100624
  Receipt Date: 20100520
  Transmission Date: 20101027
  Serious: Yes (Hospitalization)
  Sender: FDA-Public Use
  Company Number: CA-GENENTECH-302596

PATIENT
  Sex: Male
  Weight: 64.9 kg

DRUGS (8)
  1. RITUXIMAB [Suspect]
     Indication: NON-HODGKIN'S LYMPHOMA
     Dosage: 662 MG, Q8W
     Route: 042
     Dates: start: 20100222, end: 20100519
  2. RO 5072759 (IGG1 MAB) [Suspect]
     Indication: NON-HODGKIN'S LYMPHOMA
     Dosage: 662 MG, Q8W
     Route: 042
     Dates: start: 20100202, end: 20100519
  3. COLACE [Concomitant]
     Indication: DRUG USE FOR UNKNOWN INDICATION
     Dosage: UNK
     Dates: start: 20100519, end: 20100519
  4. SENOKOT [Concomitant]
     Indication: DRUG USE FOR UNKNOWN INDICATION
     Dosage: UNK
     Dates: start: 20100519, end: 20100519
  5. PERCOCET [Concomitant]
     Indication: DRUG USE FOR UNKNOWN INDICATION
     Dosage: UNK
     Dates: start: 20100514, end: 20100519
  6. IMOVANCE [Concomitant]
     Indication: DRUG USE FOR UNKNOWN INDICATION
     Dosage: UNK
     Dates: end: 20100519
  7. TORADOL [Concomitant]
     Indication: DRUG USE FOR UNKNOWN INDICATION
     Dosage: UNK
     Dates: end: 20100519
  8. BIAXIN [Concomitant]
     Indication: DRUG USE FOR UNKNOWN INDICATION
     Dosage: UNK
     Dates: end: 20100519

REACTIONS (1)
  - CONFUSIONAL STATE [None]
